FAERS Safety Report 6672048-8 (Version None)
Quarter: 2010Q2

REPORT INFORMATION
  Report Type: 
  Country: None (occurrence: None)
  Receive Date: 20100406
  Receipt Date: 20100325
  Transmission Date: 20101027
  Serious: Yes (Hospitalization)
  Sender: FDA-Public Use
  Company Number: 009332

PATIENT
  Age: 90 Year
  Sex: Male

DRUGS (7)
  1. KEPPRA [Suspect]
     Dates: start: 20100210, end: 20100201
  2. PREVISCAN /00789001/ [Concomitant]
  3. CARDENSIEL [Concomitant]
  4. LASILIX /00032601/ [Concomitant]
  5. PERMIXON /00833501/ [Concomitant]
  6. SPIRVIA [Concomitant]
  7. IMUREL /00001501/ [Concomitant]

REACTIONS (1)
  - THROMBOCYTOPENIA [None]
